FAERS Safety Report 9783139 (Version 1)
Quarter: 2013Q4

REPORT INFORMATION
  Report Type: Spontaneous
  Country: CO (occurrence: CO)
  Receive Date: 20131226
  Receipt Date: 20131226
  Transmission Date: 20140711
  Serious: Yes (Other)
  Sender: FDA-Public Use
  Company Number: CO-PFIZER INC-2013367509

PATIENT
  Age: 62 Year
  Sex: Male

DRUGS (4)
  1. CARDURAN XL [Suspect]
     Indication: URINARY TRACT INFECTION
     Dosage: 4 MG, ONCE DAILY
     Route: 048
     Dates: start: 201310
  2. CARDURAN XL [Suspect]
     Indication: PROSTATIC DISORDER
  3. METFORMIN [Concomitant]
     Indication: DIABETES MELLITUS
     Dosage: 850 MG, ONCE DAILY
     Route: 048
     Dates: start: 2001
  4. LOSARTAN [Concomitant]
     Indication: HYPERTENSION
     Dosage: 5 MG, ONCE DAILY
     Route: 048
     Dates: start: 2011

REACTIONS (1)
  - Hepatobiliary disease [Unknown]
